FAERS Safety Report 9118310 (Version 1)
Quarter: 2013Q1

REPORT INFORMATION
  Report Type: Spontaneous
  Country: US (occurrence: None)
  Receive Date: 20130221
  Receipt Date: 20130221
  Transmission Date: 20140127
  Serious: Yes (Other)
  Sender: FDA-Public Use
  Company Number: None

PATIENT
  Age: 66 Year
  Sex: Female
  Weight: 75.3 kg

DRUGS (4)
  1. LIPITOR 10 MG PITZER US PHARMACY [Suspect]
     Indication: BLOOD CHOLESTEROL ABNORMAL
     Route: 048
     Dates: start: 20000101, end: 20120405
  2. AZATHIOPRINE 50 MG ROXANE LAB. [Suspect]
     Indication: IMMUNE SYSTEM DISORDER
     Route: 048
     Dates: start: 20120803, end: 20120904
  3. LIPITOR [Concomitant]
  4. AZATHIOPRINE [Concomitant]

REACTIONS (1)
  - Autoimmune hepatitis [None]
